FAERS Safety Report 10070064 (Version 1)
Quarter: 2014Q2

REPORT INFORMATION
  Report Type: Spontaneous
  Country: HU (occurrence: HU)
  Receive Date: 20140410
  Receipt Date: 20140410
  Transmission Date: 20141212
  Serious: Yes (Hospitalization)
  Sender: FDA-Public Use
  Company Number: HU-VERTEX PHARMACEUTICALS INC-2014-001873

PATIENT
  Age: 66 Year
  Sex: Female
  Weight: 75 kg

DRUGS (10)
  1. INCIVO [Suspect]
     Indication: CHRONIC HEPATITIS C
     Dosage: 750 MG, TID
     Route: 048
     Dates: start: 20130905, end: 20131126
  2. RIBAVIRIN [Suspect]
     Indication: CHRONIC HEPATITIS C
     Dosage: 400 MG, BID
     Route: 048
     Dates: start: 20131003, end: 20131022
  3. RIBAVIRIN [Suspect]
     Dosage: 200 MG, BID
     Route: 048
     Dates: start: 20131023, end: 20131030
  4. RIBAVIRIN [Suspect]
     Dosage: 600 MG, BID
     Route: 048
     Dates: start: 20130905, end: 20131002
  5. PEGINTERFERON ALFA [Suspect]
     Indication: CHRONIC HEPATITIS C
     Dosage: 180 ?G, QW
     Route: 058
     Dates: start: 20130905
  6. ACCUPRO [Concomitant]
     Indication: HYPERTENSION
     Dosage: 10 MG, QD
     Route: 048
     Dates: start: 2009
  7. BRINALDIX [Concomitant]
     Indication: HYPERTENSION
     Dosage: 10 MG, QD
     Route: 048
     Dates: start: 2009
  8. MILURIT [Concomitant]
     Indication: GOUT
     Dosage: 100 MG, QD
     Route: 048
     Dates: start: 2010
  9. MILURIT [Concomitant]
     Dosage: 100 MG, QD
     Route: 048
     Dates: start: 2010
  10. PANTOPRAZOLE [Concomitant]
     Indication: NAUSEA
     Dosage: 80 MG, QD
     Route: 048
     Dates: start: 20130924

REACTIONS (5)
  - Cough [Recovered/Resolved]
  - Haemoptysis [Recovered/Resolved]
  - Anaemia [Unknown]
  - Nausea [Unknown]
  - Vomiting [Unknown]
